FAERS Safety Report 15809155 (Version 2)
Quarter: 2019Q1

REPORT INFORMATION
  Report Type: Spontaneous
  Country: GB (occurrence: GB)
  Receive Date: 20190110
  Receipt Date: 20190130
  Transmission Date: 20190417
  Serious: Yes (Other)
  Sender: FDA-Public Use
  Company Number: GB-ALSI-201900002

PATIENT
  Age: 19 Year
  Sex: Male

DRUGS (1)
  1. NITROUS OXIDE. [Suspect]
     Active Substance: NITROUS OXIDE
     Indication: DRUG ABUSE
     Route: 055

REACTIONS (3)
  - Subacute combined cord degeneration [Recovered/Resolved]
  - Drug abuse [Recovered/Resolved]
  - Vitamin B12 deficiency [Recovered/Resolved]
